FAERS Safety Report 9001304 (Version 1)
Quarter: 2013Q1

REPORT INFORMATION
  Report Type: Spontaneous
  Country: FR (occurrence: FR)
  Receive Date: 20130107
  Receipt Date: 20130107
  Transmission Date: 20140127
  Serious: Yes (Life-Threatening, Hospitalization, Other)
  Sender: FDA-Public Use
  Company Number: FR-ABBOTT-13P-056-1030151-00

PATIENT
  Age: 31 None
  Sex: Female

DRUGS (7)
  1. NORVIR [Suspect]
     Indication: HIV INFECTION
     Route: 048
     Dates: start: 201012
  2. TAXOTERE [Suspect]
     Indication: PRODUCT USED FOR UNKNOWN INDICATION
     Route: 042
     Dates: start: 20120912
  3. REYATAZ [Interacting]
     Indication: HIV INFECTION
     Route: 048
     Dates: start: 201012
  4. TRUVADA [Concomitant]
     Indication: HIV INFECTION
     Dates: start: 201012
  5. IMOVANE [Concomitant]
     Indication: PRODUCT USED FOR UNKNOWN INDICATION
     Dates: start: 20120912
  6. EUPANTOL [Concomitant]
     Indication: PRODUCT USED FOR UNKNOWN INDICATION
     Dates: start: 20120912
  7. DAFALGAN CODEINE [Concomitant]
     Indication: PRODUCT USED FOR UNKNOWN INDICATION
     Dates: start: 20120912

REACTIONS (10)
  - Invasive ductal breast carcinoma [Unknown]
  - Rash generalised [Recovering/Resolving]
  - Aplasia [Recovering/Resolving]
  - Skin exfoliation [Recovering/Resolving]
  - Septic shock [Unknown]
  - Stevens-Johnson syndrome [Unknown]
  - Pyrexia [Unknown]
  - Hypotension [Unknown]
  - Agitation [Unknown]
  - Drug interaction [Unknown]
